FAERS Safety Report 9969992 (Version 1)
Quarter: 2014Q1

REPORT INFORMATION
  Report Type: Report from Study
  Country: EG (occurrence: EG)
  Receive Date: 20140306
  Receipt Date: 20140306
  Transmission Date: 20141002
  Serious: Yes (Hospitalization)
  Sender: FDA-Public Use
  Company Number: EG-SA-2014SA024375

PATIENT
  Age: 13 Year
  Sex: Female

DRUGS (1)
  1. LANTUS [Suspect]
     Indication: TYPE 1 DIABETES MELLITUS
     Route: 058
     Dates: start: 20131008, end: 20140123

REACTIONS (2)
  - Ketoacidosis [Recovered/Resolved]
  - Hyperglycaemia [Recovered/Resolved]
